FAERS Safety Report 14184409 (Version 1)
Quarter: 2017Q4

REPORT INFORMATION
  Report Type: Report from Study
  Country: JP (occurrence: JP)
  Receive Date: 20171113
  Receipt Date: 20171113
  Transmission Date: 20180321
  Serious: Yes (Hospitalization)
  Sender: FDA-Public Use
  Company Number: JP-EISAI MEDICAL RESEARCH-EC-2017-033001

PATIENT
  Age: 56 Year
  Sex: Male
  Weight: 72 kg

DRUGS (19)
  1. SODIUM PICOSULFATE HYDRATE [Concomitant]
     Active Substance: SODIUM PICOSULFATE
  2. E KEPPRA [Suspect]
     Active Substance: LEVETIRACETAM
     Indication: PARTIAL SEIZURES
     Route: 048
  3. MAGMITT [Concomitant]
     Active Substance: MAGNESIUM OXIDE
  4. FYCOMPA [Suspect]
     Active Substance: PERAMPANEL
     Route: 048
     Dates: start: 20170713, end: 20170726
  5. FYCOMPA [Suspect]
     Active Substance: PERAMPANEL
     Route: 048
     Dates: start: 20170727
  6. EXCEGRAN [Suspect]
     Active Substance: ZONISAMIDE
     Indication: PARTIAL SEIZURES
     Route: 048
     Dates: end: 20170531
  7. SM (TAKA-DIASTASE/NATURAL AGENTS COMBINED DRUG) [Concomitant]
  8. BENIDIPINE HYDROCHLORIDE [Concomitant]
     Active Substance: BENIDIPINE HYDROCHLORIDE
  9. LANSOPRAZOLE OD [Concomitant]
     Active Substance: LANSOPRAZOLE
  10. EXCEGRAN [Suspect]
     Active Substance: ZONISAMIDE
     Route: 048
     Dates: start: 20170601
  11. ZYPREXA [Concomitant]
     Active Substance: OLANZAPINE
  12. LAMICTAL [Suspect]
     Active Substance: LAMOTRIGINE
     Indication: PARTIAL SEIZURES
     Route: 048
  13. MYSTAN [Suspect]
     Active Substance: CLOBAZAM
     Indication: PARTIAL SEIZURES
     Route: 048
     Dates: end: 20170629
  14. MOSAPRIDE CITRATE HYDRATE [Concomitant]
     Active Substance: MOSAPRIDE CITRATE DIHYDRATE
  15. LYRICA [Concomitant]
     Active Substance: PREGABALIN
  16. FYCOMPA [Suspect]
     Active Substance: PERAMPANEL
     Indication: PARTIAL SEIZURES
     Route: 048
     Dates: start: 20170518, end: 20170705
  17. FYCOMPA [Suspect]
     Active Substance: PERAMPANEL
     Route: 048
     Dates: start: 20170706, end: 20170712
  18. BIO-THREE(CLOSTRIDIUM BUTYRICUM COMBINED DRUG) [Concomitant]
  19. MOHRUS TAPE [Concomitant]
     Active Substance: KETOPROFEN

REACTIONS (1)
  - Dizziness [Recovered/Resolved]

NARRATIVE: CASE EVENT DATE: 20170629
